FAERS Safety Report 19286148 (Version 1)
Quarter: 2021Q2

REPORT INFORMATION
  Report Type: Spontaneous
  Country: US (occurrence: US)
  Receive Date: 20210521
  Receipt Date: 20210521
  Transmission Date: 20210717
  Serious: No
  Sender: FDA-Public Use
  Company Number: US-RADIUS HEALTH INC.-2020US001896

PATIENT
  Sex: Female

DRUGS (1)
  1. TYMLOS [Suspect]
     Active Substance: ABALOPARATIDE
     Indication: OSTEOPOROSIS POSTMENOPAUSAL
     Dosage: 80MCG/QD
     Route: 058
     Dates: start: 202004

REACTIONS (8)
  - Myalgia [Unknown]
  - Bone pain [Recovering/Resolving]
  - Product quality issue [Unknown]
  - Nausea [Recovering/Resolving]
  - Pain [Unknown]
  - Headache [Recovering/Resolving]
  - Heart rate increased [Unknown]
  - Fatigue [Recovering/Resolving]
